FAERS Safety Report 9248321 (Version 1)
Quarter: 2013Q1

REPORT INFORMATION
  Report Type: Spontaneous
  Country: US (occurrence: None)
  Receive Date: 20130305
  Receipt Date: 20130305
  Transmission Date: 20140127
  Serious: Yes (Other)
  Sender: FDA-Public Use
  Company Number: 163-21880-12092828

PATIENT
  Age: 75 Year
  Sex: Male
  Weight: 88.45 kg

DRUGS (9)
  1. REVLIMID [Suspect]
     Indication: PLASMA CELL MYELOMA
     Route: 048
     Dates: start: 201201, end: 20120814
  2. LISINOPRIL (LISINOPRIL) [Concomitant]
  3. PLAVIX (CLOPIDOGREL SULFATE) [Concomitant]
  4. POTASSIUM (POTASSIUM) [Concomitant]
  5. CALCIUM (CALCIUM) [Concomitant]
  6. DULCOLAX (BISACODYL) [Concomitant]
  7. IMODIUM (LOPERAMIDE) [Concomitant]
  8. JALYN (DUTAS-T) [Concomitant]
  9. METOPROLOL (METOPROLOL) [Concomitant]

REACTIONS (2)
  - Neutrophil count decreased [None]
  - Bronchitis [None]
